FAERS Safety Report 4851849-2 (Version None)
Quarter: 2005Q4

REPORT INFORMATION
  Report Type: 
  Country: None (occurrence: None)
  Receive Date: 20051209
  Receipt Date: 20051125
  Transmission Date: 20060501
  Serious: Yes (Other)
  Sender: FDA-Public Use
  Company Number: MAG-2005-0000412

PATIENT
  Age: 76 Year
  Sex: Male

DRUGS (1)
  1. THEOPHYLLINE [Suspect]
     Indication: EMPHYSEMA
     Dosage: ORAL
     Route: 048

REACTIONS (7)
  - CONVULSION [None]
  - DRUG LEVEL INCREASED [None]
  - DRUG TOXICITY [None]
  - GRAND MAL CONVULSION [None]
  - INCORRECT DOSE ADMINISTERED [None]
  - RENAL FAILURE ACUTE [None]
  - RHABDOMYOLYSIS [None]
